FAERS Safety Report 11700185 (Version 1)
Quarter: 2015Q4

REPORT INFORMATION
  Report Type: Other
  Country: PT (occurrence: PT)
  Receive Date: 20151105
  Receipt Date: 20151105
  Transmission Date: 20160304
  Serious: Yes (Other)
  Sender: FDA-Public Use
  Company Number: PT-ASTELLAS-2015US040705

PATIENT
  Sex: Male

DRUGS (6)
  1. SIMVASTATINE [Concomitant]
     Active Substance: SIMVASTATIN
     Indication: PRODUCT USED FOR UNKNOWN INDICATION
     Dosage: UNK UNK, UNKNOWN FREQ.
     Route: 048
  2. GLICLAZIDA [Concomitant]
     Indication: PRODUCT USED FOR UNKNOWN INDICATION
     Dosage: UNK UNK, UNKNOWN FREQ.
     Route: 048
  3. LERCANIDIPINA                      /01366401/ [Concomitant]
     Indication: PRODUCT USED FOR UNKNOWN INDICATION
     Dosage: UNK UNK, UNKNOWN FREQ.
     Route: 048
  4. TARCEVA [Suspect]
     Active Substance: ERLOTINIB HYDROCHLORIDE
     Indication: LUNG NEOPLASM MALIGNANT
     Route: 048
     Dates: start: 20141015, end: 201507
  5. LOSARTAN/HCTZ GT [Concomitant]
     Indication: PRODUCT USED FOR UNKNOWN INDICATION
     Dosage: UNK UNK, UNKNOWN FREQ.
     Route: 048
  6. TARCEVA [Suspect]
     Active Substance: ERLOTINIB HYDROCHLORIDE
     Route: 048

REACTIONS (10)
  - Adverse reaction [Unknown]
  - Exfoliative rash [Unknown]
  - Aphthous ulcer [Unknown]
  - Erythema [Unknown]
  - Rash [Unknown]
  - Oral candidiasis [Unknown]
  - Rash erythematous [Unknown]
  - Papule [Unknown]
  - Pruritus [Unknown]
  - Rash papular [Unknown]

NARRATIVE: CASE EVENT DATE: 2014
